FAERS Safety Report 4286389-5 (Version None)
Quarter: 2004Q1

REPORT INFORMATION
  Report Type: 
  Country: None (occurrence: None)
  Receive Date: 20040126
  Receipt Date: 20031119
  Transmission Date: 20041129
  Serious: Yes (Hospitalization, Other)
  Sender: FDA-Public Use
  Company Number: USA031049827

PATIENT
  Age: 61 Year
  Sex: Female

DRUGS (6)
  1. EVISTA [Suspect]
     Indication: OSTEOPOROSIS
  2. FORTEO [Suspect]
     Indication: OSTEOPOROSIS
     Dates: start: 20030901
  3. CALCIUM [Concomitant]
  4. VITAMIN B [Concomitant]
  5. VITAMIN C [Concomitant]
  6. FOSAMAX [Concomitant]

REACTIONS (5)
  - INJECTION SITE BURNING [None]
  - INJECTION SITE STINGING [None]
  - SPINAL COMPRESSION FRACTURE [None]
  - SURGERY [None]
  - WEIGHT INCREASED [None]
